FAERS Safety Report 11347668 (Version 3)
Quarter: 2015Q3

REPORT INFORMATION
  Report Type: Spontaneous
  Country: US (occurrence: US)
  Receive Date: 20150803
  Receipt Date: 20150903
  Transmission Date: 20151125
  Serious: No
  Sender: FDA-Public Use
  Company Number: US-ELI_LILLY_AND_COMPANY-US201108004953

PATIENT
  Age: 55 Year
  Sex: Male

DRUGS (10)
  1. DEPAKOTE [Concomitant]
     Active Substance: DIVALPROEX SODIUM
  2. PROPRANOLOL [Concomitant]
     Active Substance: PROPRANOLOL\PROPRANOLOL HYDROCHLORIDE
     Dosage: 40 MG, UNK
  3. TAPAZOLE [Concomitant]
     Active Substance: METHIMAZOLE
     Dosage: 2 MG, UNK
     Dates: start: 200502
  4. ZYPREXA [Suspect]
     Active Substance: OLANZAPINE
     Indication: MANIA
     Dosage: 10 MG, TID
     Dates: start: 19950108, end: 20040823
  5. TAPAZOLE [Concomitant]
     Active Substance: METHIMAZOLE
     Dosage: 2 MG, UNK
     Dates: start: 200505, end: 2005
  6. VALIUM [Concomitant]
     Active Substance: DIAZEPAM
     Indication: HYPERTHYROIDISM
     Dosage: 5 MG, TID
  7. HYDROXYZINE [Concomitant]
     Active Substance: HYDROXYZINE\HYDROXYZINE HYDROCHLORIDE
  8. TAPAZOLE [Concomitant]
     Active Substance: METHIMAZOLE
     Dosage: 1 MG, UNK
  9. CYMBALTA [Suspect]
     Active Substance: DULOXETINE HYDROCHLORIDE
     Indication: MENTAL DISORDER
     Dosage: UNK
     Dates: start: 200501, end: 200505
  10. CYMBALTA [Suspect]
     Active Substance: DULOXETINE HYDROCHLORIDE
     Dosage: UNK
     Dates: start: 201102, end: 20110312

REACTIONS (9)
  - Skin haemorrhage [Unknown]
  - Prescribed overdose [Recovered/Resolved]
  - Goitre [Unknown]
  - Off label use [Recovered/Resolved]
  - Hypersensitivity [Not Recovered/Not Resolved]
  - Pruritus generalised [Not Recovered/Not Resolved]
  - Visual acuity reduced [Recovered/Resolved]
  - Sensory disturbance [Unknown]
  - Eye pruritus [Not Recovered/Not Resolved]

NARRATIVE: CASE EVENT DATE: 19950108
